FAERS Safety Report 8580429-0 (Version None)
Quarter: 2012Q3

REPORT INFORMATION
  Report Type: 
  Country: None (occurrence: None)
  Receive Date: 20120808
  Receipt Date: 20120803
  Transmission Date: 20120928
  Serious: Yes (Life-Threatening)
  Sender: FDA-Public Use
  Company Number: IT-TEVA-352064ISR

PATIENT
  Sex: Male

DRUGS (4)
  1. FLECAINIDE ACETATE [Concomitant]
     Indication: CARDIAC FAILURE
     Dosage: 100 MILLIGRAM DAILY;
     Route: 048
  2. FLUOROURACIL [Suspect]
     Indication: GASTRIC CANCER
     Dosage: 1160 MILLIGRAM DAILY;
     Route: 048
     Dates: start: 20120730, end: 20120802
  3. TORADOL [Concomitant]
     Dosage: 30 MILLIGRAM DAILY;
     Route: 030
  4. CISPLATIN [Suspect]
     Indication: GASTRIC CANCER
     Dosage: 87 MILLIGRAM DAILY;
     Route: 042
     Dates: start: 20120730, end: 20120730

REACTIONS (6)
  - VOMITING [None]
  - HYPERAMMONAEMIA [None]
  - ENCEPHALOPATHY [None]
  - PSYCHOMOTOR HYPERACTIVITY [None]
  - APALLIC SYNDROME [None]
  - NAUSEA [None]
